FAERS Safety Report 8828750 (Version 1)
Quarter: 2012Q4

REPORT INFORMATION
  Report Type: 
  Country: TR (occurrence: TR)
  Receive Date: 20121008
  Receipt Date: 20121008
  Transmission Date: 20130627
  Serious: Yes (Life-Threatening)
  Sender: FDA-Public Use
  Company Number: TR-BAYER-2012-103864

PATIENT
  Age: 39 Year
  Sex: Female
  Weight: 60 kg

DRUGS (3)
  1. AVELOX [Suspect]
     Indication: PYREXIA
     Dosage: UNK
     Route: 042
     Dates: start: 20120918, end: 20120918
  2. PARACETAMOL [Concomitant]
  3. MERONEM [Concomitant]

REACTIONS (2)
  - Tachypnoea [Recovered/Resolved]
  - Respiratory distress [Recovered/Resolved]
